FAERS Safety Report 5093624-2 (Version None)
Quarter: 2006Q3

REPORT INFORMATION
  Report Type: 
  Country: None (occurrence: None)
  Receive Date: 20060829
  Receipt Date: 20060814
  Transmission Date: 20061208
  Serious: No
  Sender: FDA-Public Use
  Company Number: US200608003059

PATIENT
  Age: 58 Year
  Sex: Male

DRUGS (4)
  1. CIALIS [Suspect]
     Indication: ERECTILE DYSFUNCTION
     Dosage: 20 MG
     Dates: start: 20060201
  2. VITAMIN B COMPLEX CAP [Concomitant]
  3. ASPIRIN [Concomitant]
  4. LEVITRA [Concomitant]

REACTIONS (3)
  - FLUSHING [None]
  - PHOTOPHOBIA [None]
  - VISION BLURRED [None]
